FAERS Safety Report 8612205-4 (Version None)
Quarter: 2012Q3

REPORT INFORMATION
  Report Type: 
  Country: None (occurrence: None)
  Receive Date: 20120822
  Receipt Date: 20120820
  Transmission Date: 20120928
  Serious: Yes (Hospitalization)
  Sender: FDA-Public Use
  Company Number: JP-PFIZER INC-2012172647

PATIENT
  Age: 70 Year
  Sex: Male

DRUGS (10)
  1. LISINOPRIL [Concomitant]
     Dosage: UNK
  2. DIOVAN [Concomitant]
     Dosage: UNK
  3. AMLODIPINE [Concomitant]
     Dosage: UNK
  4. CYMBALTA [Concomitant]
     Dosage: UNK
  5. TRIAZOLAM [Concomitant]
     Dosage: UNK
  6. LYRICA [Suspect]
     Dosage: 450 MG A DAY
     Route: 048
  7. YODEL [Concomitant]
     Dosage: UNK
  8. RISPERDAL [Concomitant]
     Dosage: UNK
  9. ZOLPIDEM [Concomitant]
     Dosage: UNK
  10. LEDOLPER [Concomitant]
     Dosage: UNK

REACTIONS (5)
  - PNEUMONIA [None]
  - GASTROINTESTINAL HAEMORRHAGE [None]
  - INTESTINAL OBSTRUCTION [None]
  - ABDOMINAL PAIN UPPER [None]
  - SHOCK HAEMORRHAGIC [None]
